FAERS Safety Report 15008913 (Version 3)
Quarter: 2019Q2

REPORT INFORMATION
  Report Type: Spontaneous
  Country: US (occurrence: US)
  Receive Date: 20180613
  Receipt Date: 20190625
  Transmission Date: 20190711
  Serious: No
  Sender: FDA-Public Use
  Company Number: US-JNJFOC-20180541354

PATIENT
  Age: 65 Year
  Sex: Male

DRUGS (14)
  1. BUPROPION. [Concomitant]
     Active Substance: BUPROPION
  2. XANAX [Concomitant]
     Active Substance: ALPRAZOLAM
     Route: 048
  3. REMICADE [Suspect]
     Active Substance: INFLIXIMAB
     Indication: PRODUCT USED FOR UNKNOWN INDICATION
     Route: 042
     Dates: end: 201904
  4. PERCOCET [Concomitant]
     Active Substance: ACETAMINOPHEN\OXYCODONE HYDROCHLORIDE
     Indication: PAIN
  5. HYDROCODONE [Concomitant]
     Active Substance: HYDROCODONE
     Route: 048
  6. RANITIDINE. [Concomitant]
     Active Substance: RANITIDINE
  7. TRAZODONE [Concomitant]
     Active Substance: TRAZODONE HYDROCHLORIDE
     Route: 048
  8. TAMSULOSIN [Concomitant]
     Active Substance: TAMSULOSIN
     Indication: PROSTATIC DISORDER
  9. HYDROXYZINE [Concomitant]
     Active Substance: HYDROXYZINE HYDROCHLORIDE
     Indication: SLEEP DISORDER
  10. REMICADE [Suspect]
     Active Substance: INFLIXIMAB
     Route: 042
     Dates: start: 20190509
  11. DOXEPIN [Concomitant]
     Active Substance: DOXEPIN
     Route: 048
  12. ALBUTEROL. [Concomitant]
     Active Substance: ALBUTEROL
     Route: 065
  13. DOCUSATE [Concomitant]
     Active Substance: DOCUSATE
  14. COSENTYX [Concomitant]
     Active Substance: SECUKINUMAB
     Route: 058

REACTIONS (3)
  - Drug hypersensitivity [Unknown]
  - Drug tolerance increased [Not Recovered/Not Resolved]
  - Eye swelling [Unknown]

NARRATIVE: CASE EVENT DATE: 201902
